FAERS Safety Report 10331780 (Version 1)
Quarter: 2014Q3

REPORT INFORMATION
  Report Type: Spontaneous
  Country: IL (occurrence: IL)
  Receive Date: 20140722
  Receipt Date: 20140722
  Transmission Date: 20150326
  Serious: Yes (Congenital Anomaly, Other)
  Sender: FDA-Public Use
  Company Number: PHHY2014IL088713

PATIENT
  Sex: Male

DRUGS (2)
  1. OLANZAPINE. [Suspect]
     Active Substance: OLANZAPINE
     Route: 064
  2. LITHIUM [Suspect]
     Active Substance: LITHIUM CARBONATE
     Dosage: (MATERNAL DOSE: 1200 MG/DAY)
     Route: 064

REACTIONS (5)
  - Premature baby [Unknown]
  - Microtia [Unknown]
  - Tricuspid valve incompetence [Unknown]
  - Low birth weight baby [Unknown]
  - Foetal exposure during pregnancy [Unknown]
